FAERS Safety Report 9835996 (Version 2)
Quarter: 2014Q1

REPORT INFORMATION
  Report Type: Spontaneous
  Country: DE (occurrence: DE)
  Receive Date: 20140122
  Receipt Date: 20140205
  Transmission Date: 20141002
  Serious: Yes (Hospitalization, Other)
  Sender: FDA-Public Use
  Company Number: DE-009507513-1401DEU007839

PATIENT
  Age: 38 Year
  Sex: Female
  Weight: 85 kg

DRUGS (10)
  1. NUVARING [Suspect]
     Indication: CONTRACEPTION
     Dosage: UNK
     Route: 067
     Dates: start: 201307
  2. NUVARING [Suspect]
     Dosage: UNK
     Route: 067
     Dates: start: 200901, end: 201005
  3. NUVARING [Suspect]
     Dosage: UNK
     Route: 067
     Dates: start: 201107, end: 201206
  4. FOLVERLAN [Concomitant]
     Indication: GOITRE
     Dosage: 0.4 MG, UNK
  5. ACETAMINOPHEN [Concomitant]
     Dosage: AS NEEDED
  6. RHOPHYLAC [Concomitant]
     Dosage: 300 MICROGRAM, UNK
     Dates: start: 20130313
  7. RHOPHYLAC [Concomitant]
     Dosage: UNK
     Dates: start: 20130506
  8. FERINJECT [Concomitant]
     Dosage: 100 MG, UNK
     Route: 042
     Dates: start: 20130409
  9. JODIN [Concomitant]
  10. VAGISAN (LACTIC ACID (+) SODIUM LACTATE) [Concomitant]
     Route: 067

REACTIONS (2)
  - Non-Hodgkin^s lymphoma [Unknown]
  - Maternal exposure before pregnancy [Recovered/Resolved]
